FAERS Safety Report 9220797 (Version 1)
Quarter: 2013Q2

REPORT INFORMATION
  Report Type: Spontaneous
  Country: DE (occurrence: DE)
  Receive Date: 20130409
  Receipt Date: 20130409
  Transmission Date: 20140414
  Serious: Yes (Other)
  Sender: FDA-Public Use
  Company Number: DE-TEVA-395735GER

PATIENT
  Age: 28 Year
  Sex: Female
  Weight: 158 kg

DRUGS (9)
  1. LAMOTRIGINE [Suspect]
     Indication: EPILEPSY
     Dosage: DOSE NOT EXACTLY KNOWN; 50-300 MG/D
     Route: 048
     Dates: start: 20080922, end: 20090206
  2. ERGENYL CHRONO [Suspect]
     Indication: EPILEPSY
     Dosage: 3000 MILLIGRAM DAILY;
     Route: 048
     Dates: start: 20080922, end: 20081231
  3. KEPPRA [Suspect]
     Indication: EPILEPSY
     Dosage: 4000 MILLIGRAM DAILY;
     Route: 048
     Dates: start: 20080922, end: 20090213
  4. PHENYTOIN [Suspect]
     Indication: EPILEPSY
     Dosage: 300 MILLIGRAM DAILY;
     Route: 048
     Dates: start: 20080922, end: 20090213
  5. FRISIUM [Suspect]
     Indication: EPILEPSY
     Dosage: 20 MILLIGRAM DAILY;
     Route: 048
     Dates: start: 20080922, end: 20090213
  6. LUMINAL [Suspect]
     Indication: EPILEPSY
     Dosage: 50 MILLIGRAM DAILY;
     Dates: start: 20080922, end: 20090213
  7. TAVOR [Suspect]
     Indication: SLEEP DISORDER
     Route: 048
  8. VIMPAT [Concomitant]
     Indication: EPILEPSY
     Dosage: UNKNOWN DOSAGE
     Route: 048
     Dates: end: 20090204
  9. THYROXIN [Concomitant]
     Indication: HYPOTHYROIDISM
     Dosage: UNKNOWN DOSE
     Route: 048

REACTIONS (2)
  - Abortion induced [Unknown]
  - Exposure during pregnancy [None]
